FAERS Safety Report 8852996 (Version 1)
Quarter: 2012Q4

REPORT INFORMATION
  Report Type: Report from Study
  Country: DE (occurrence: JP)
  Receive Date: 20121022
  Receipt Date: 20121022
  Transmission Date: 20130627
  Serious: Yes (Other)
  Sender: FDA-Public Use
  Company Number: JP-BRISTOL-MYERS SQUIBB COMPANY-17037979

PATIENT
  Age: 69 Year
  Sex: Male
  Weight: 71 kg

DRUGS (13)
  1. ERBITUX SOLN FOR INF 5MG/ML [Suspect]
     Indication: RECTAL CANCER
     Dosage: 20Jan09-31Mar09(400mg)
     Route: 041
     Dates: start: 20090113, end: 20090331
  2. POLARAMINE [Concomitant]
     Indication: PREMEDICATION
     Route: 042
     Dates: start: 20090113, end: 20090331
  3. DECADRON [Concomitant]
     Indication: PREMEDICATION
     Route: 042
     Dates: start: 20090113, end: 20090331
  4. LASIX [Concomitant]
     Dosage: tabs
     Route: 048
     Dates: start: 20090113, end: 20090402
  5. NITROPEN [Concomitant]
     Indication: CHEST PAIN
     Route: 048
     Dates: start: 20090113, end: 20090402
  6. DAI-KENCHU-TO [Concomitant]
     Indication: RECTAL CANCER
     Dosage: Granules
     Route: 048
     Dates: start: 20090113, end: 20090402
  7. MAGLAX [Concomitant]
     Indication: RECTAL CANCER
     Dosage: tabs
     Route: 048
     Dates: start: 20090113, end: 20090402
  8. PROTECADIN [Concomitant]
     Indication: PROPHYLAXIS
     Route: 048
     Dates: start: 20090113, end: 20090402
  9. EUGLUCON [Concomitant]
     Indication: DIABETES MELLITUS
     Dosage: tabs.
     Route: 048
     Dates: start: 20090113, end: 20090402
  10. WARFARIN [Concomitant]
     Indication: THROMBOSIS PROPHYLAXIS
     Dosage: tabs.
     Route: 048
     Dates: start: 20090113, end: 20090402
  11. AMLODIN [Concomitant]
     Indication: ANGINA PECTORIS
     Dosage: tabs.
     Route: 048
     Dates: start: 20090113, end: 20090402
  12. LOPRESSOR [Concomitant]
     Indication: ANGINA PECTORIS
     Dosage: TABS.
     Route: 048
     Dates: start: 20090113, end: 20090402
  13. ITOROL [Concomitant]
     Indication: CARDIOVASCULAR EVENT PROPHYLAXIS
     Dosage: tab
     Route: 048
     Dates: start: 20090113, end: 20090402

REACTIONS (5)
  - Cardiac failure [Recovering/Resolving]
  - Angina pectoris [Recovered/Resolved]
  - Anaemia [Recovering/Resolving]
  - Dermatitis acneiform [Not Recovered/Not Resolved]
  - Palmar-plantar erythrodysaesthesia syndrome [Not Recovered/Not Resolved]
